FAERS Safety Report 5029514-0 (Version None)
Quarter: 2006Q2

REPORT INFORMATION
  Report Type: 
  Country: None (occurrence: None)
  Receive Date: 20060620
  Receipt Date: 20050913
  Transmission Date: 20061013
  Serious: No
  Sender: FDA-Public Use
  Company Number: US-GLAXOSMITHKLINE-A0574052A

PATIENT
  Age: 50 Year
  Sex: Female

DRUGS (4)
  1. ZYBAN [Suspect]
     Dosage: 1TAB PER DAY
     Route: 048
     Dates: start: 20040101
  2. HEART MEDICATION [Concomitant]
  3. XANAX [Concomitant]
  4. PERCODAN [Concomitant]

REACTIONS (1)
  - INSOMNIA [None]
